FAERS Safety Report 6356702-3 (Version None)
Quarter: 2009Q3

REPORT INFORMATION
  Report Type: 
  Country: None (occurrence: None)
  Receive Date: 20090914
  Receipt Date: 20090914
  Transmission Date: 20100115
  Serious: Yes (Other)
  Sender: FDA-Public Use
  Company Number: None

PATIENT
  Age: 67 Year
  Sex: Male
  Weight: 97.0698 kg

DRUGS (1)
  1. UROXATRAL [Suspect]
     Indication: PROSTATITIS
     Dosage: 10 MG 1X DAILY PO
     Route: 048
     Dates: start: 20080101, end: 20090328

REACTIONS (2)
  - BODY TEMPERATURE INCREASED [None]
  - CHILLS [None]
